FAERS Safety Report 20922170 (Version 1)
Quarter: 2022Q2

REPORT INFORMATION
  Report Type: Spontaneous
  Country: US (occurrence: US)
  Receive Date: 20220607
  Receipt Date: 20220607
  Transmission Date: 20220721
  Serious: No
  Sender: FDA-Public Use
  Company Number: US-AUROBINDO-AUR-APL-2021-044544

PATIENT
  Sex: Female

DRUGS (1)
  1. LORATADINE [Suspect]
     Active Substance: LORATADINE
     Indication: Rhinorrhoea
     Dosage: UNK
     Route: 065

REACTIONS (3)
  - Decreased appetite [Unknown]
  - Abdominal discomfort [Not Recovered/Not Resolved]
  - Product dose omission issue [Unknown]
